FAERS Safety Report 6973379-4 (Version None)
Quarter: 2010Q3

REPORT INFORMATION
  Report Type: 
  Country: None (occurrence: None)
  Receive Date: 20100907
  Receipt Date: 20100830
  Transmission Date: 20110219
  Serious: Yes (Death)
  Sender: FDA-Public Use
  Company Number: OTH-PAT-2010003

PATIENT
  Age: 1 Year
  Sex: Male

DRUGS (1)
  1. BETAINE ANHYDROUS, ORAL POWDER, CYSTADANE [Suspect]
     Indication: HOMOCYSTINURIA
     Dosage: 3 G EVERY DAY / ORAL
     Route: 048
     Dates: start: 20090305, end: 20100723

REACTIONS (1)
  - DEATH [None]
